FAERS Safety Report 17096273 (Version 1)
Quarter: 2019Q4

REPORT INFORMATION
  Report Type: Spontaneous
  Country: US (occurrence: US)
  Receive Date: 20191202
  Receipt Date: 20191202
  Transmission Date: 20200122
  Serious: Yes (Other)
  Sender: FDA-Public Use
  Company Number: US-SA-2019SA326597

PATIENT
  Sex: Male

DRUGS (1)
  1. SODIUM FLUORIDE. [Suspect]
     Active Substance: SODIUM FLUORIDE
     Dosage: MOUTHWASH

REACTIONS (1)
  - Coeliac disease [Unknown]
